FAERS Safety Report 6395095-2 (Version None)
Quarter: 2009Q4

REPORT INFORMATION
  Report Type: 
  Country: None (occurrence: None)
  Receive Date: 20091009
  Receipt Date: 20090925
  Transmission Date: 20100525
  Serious: Yes (Other)
  Sender: FDA-Public Use
  Company Number: US-BAUSCH-2005BL004555

PATIENT
  Age: 86 Year
  Sex: Female
  Weight: 62 kg

DRUGS (4)
  1. GENTAMICIN SULFATE [Suspect]
     Indication: CONJUNCTIVITIS
     Route: 047
     Dates: start: 20050323, end: 20050423
  2. GENTAMICIN SULFATE [Suspect]
     Route: 047
     Dates: start: 20050323, end: 20050423
  3. GENTAMICIN SULFATE [Suspect]
     Route: 047
     Dates: start: 20050323, end: 20050423
  4. HYDROCHLOROTHIAZIDE [Concomitant]
     Indication: HYPERTENSION

REACTIONS (11)
  - CATARACT [None]
  - DRY EYE [None]
  - EYE DISORDER [None]
  - EYE IRRITATION [None]
  - EYE PAIN [None]
  - FOREIGN BODY SENSATION IN EYES [None]
  - OCULAR DISCOMFORT [None]
  - PUNCTATE KERATITIS [None]
  - STRESS [None]
  - SUPERFICIAL INJURY OF EYE [None]
  - VISION BLURRED [None]
